FAERS Safety Report 13704485 (Version 1)
Quarter: 2017Q2

REPORT INFORMATION
  Report Type: Spontaneous
  Country: US (occurrence: US)
  Receive Date: 20170629
  Receipt Date: 20170629
  Transmission Date: 20170830
  Serious: Yes (Disabling)
  Sender: FDA-Public Use
  Company Number: None

PATIENT
  Age: 56 Year
  Sex: Male
  Weight: 78.75 kg

DRUGS (4)
  1. LISINOPRYL/HCTZ [Concomitant]
  2. NORTRIPTYLINE 25MG CAPSULES [Suspect]
     Active Substance: NORTRIPTYLINE
     Indication: NEURALGIA
     Dosage: ?          OTHER STRENGTH:MG;QUANTITY:2 CAPSULE(S);?
     Route: 048
     Dates: start: 20160912, end: 20161009
  3. MELOXICAM. [Concomitant]
     Active Substance: MELOXICAM
  4. FLAXSEED [Concomitant]
     Active Substance: FLAX SEED

REACTIONS (5)
  - Dry mouth [None]
  - Malaise [None]
  - Brain injury [None]
  - Tinnitus [None]
  - Joint swelling [None]

NARRATIVE: CASE EVENT DATE: 20160928
